FAERS Safety Report 10268517 (Version 1)
Quarter: 2014Q2

REPORT INFORMATION
  Report Type: Spontaneous
  Country: US (occurrence: None)
  Receive Date: 20140627
  Receipt Date: 20140627
  Transmission Date: 20141212
  Serious: Yes (Other)
  Sender: FDA-Public Use
  Company Number: None

PATIENT
  Age: 30 Year
  Sex: Female
  Weight: 53.52 kg

DRUGS (1)
  1. OIL-FREE ACNE WASH REDNESS SOOTH SALICYLIC ACID 2% NEUTROGENA [Suspect]
     Indication: ACNE
     Dates: start: 20140601, end: 20140608

REACTIONS (4)
  - Application site irritation [None]
  - Application site dryness [None]
  - Application site pain [None]
  - Application site pruritus [None]
